FAERS Safety Report 4277524-3 (Version None)
Quarter: 2004Q1

REPORT INFORMATION
  Report Type: 
  Country: None (occurrence: None)
  Receive Date: 20040121
  Receipt Date: 20040106
  Transmission Date: 20041129
  Serious: Yes (Other)
  Sender: FDA-Public Use
  Company Number: US_040199740

PATIENT
  Age: 75 Year
  Sex: Female
  Weight: 148 kg

DRUGS (10)
  1. XIGRIS [Suspect]
     Indication: SEPSIS
     Dosage: 24 UG/KG/HR
     Dates: start: 20031204, end: 20031207
  2. ROCEPHIN [Concomitant]
  3. FLAGYL [Concomitant]
  4. PROTONIX [Concomitant]
  5. LEVOPHED (NOREPHINEPHRINE BITARTRATE) [Concomitant]
  6. NEOSYNEPHRINE BADRIAL (PHENYLEPRINE HYDROCHLORIDE) [Concomitant]
  7. ALBUMIN ^BEHRING^ (ALBUMIN NORMAL HUMAN SERUM) [Concomitant]
  8. PHOSLO [Concomitant]
  9. M.V.I. [Concomitant]
  10. TPN [Concomitant]

REACTIONS (6)
  - ACTIVATED PARTIAL THROMBOPLASTIN TIME PROLONGED [None]
  - HAEMATOCRIT DECREASED [None]
  - HAEMOGLOBIN DECREASED [None]
  - INTERNATIONAL NORMALISED RATIO INCREASED [None]
  - PLATELET COUNT DECREASED [None]
  - PROTHROMBIN TIME PROLONGED [None]
